FAERS Safety Report 7978139-3 (Version None)
Quarter: 2011Q4

REPORT INFORMATION
  Report Type: 
  Country: None (occurrence: None)
  Receive Date: 20111212
  Receipt Date: 20111212
  Transmission Date: 20120403
  Serious: Yes (Life-Threatening)
  Sender: FDA-Public Use
  Company Number: None

PATIENT
  Age: 61 Year
  Sex: Female

DRUGS (1)
  1. NEXAVAR [Suspect]
     Indication: HEPATIC NEOPLASM MALIGNANT
     Dosage: 400MG BID PO (FROM WSP 3-19-2010 PER PT BEEN NEXAVAR 2 YRS
     Route: 048

REACTIONS (2)
  - PROTEIN TOTAL INCREASED [None]
  - KIDNEY SMALL [None]
